FAERS Safety Report 22310064 (Version 2)
Quarter: 2023Q2

REPORT INFORMATION
  Report Type: Spontaneous
  Country: US (occurrence: None)
  Receive Date: 20230511
  Receipt Date: 20230615
  Transmission Date: 20230722
  Serious: No
  Sender: FDA-Public Use
  Company Number: 2023A096600

PATIENT
  Sex: Female

DRUGS (1)
  1. CRESTOR [Suspect]
     Active Substance: ROSUVASTATIN CALCIUM
     Indication: Blood cholesterol increased
     Dosage: 5.0MG UNKNOWN
     Route: 048

REACTIONS (5)
  - Blood cholesterol increased [Unknown]
  - Stress [Unknown]
  - Hypothyroidism [Unknown]
  - Intentional dose omission [Unknown]
  - Hypophagia [Unknown]
